FAERS Safety Report 7794867-7 (Version None)
Quarter: 2011Q4

REPORT INFORMATION
  Report Type: 
  Country: None (occurrence: None)
  Receive Date: 20111004
  Receipt Date: 20110926
  Transmission Date: 20120403
  Serious: Yes (Hospitalization)
  Sender: FDA-Public Use
  Company Number: PHHY2011CR85197

PATIENT
  Age: 84 Year
  Sex: Female

DRUGS (4)
  1. ENALAPRIL MALEATE [Concomitant]
     Dosage: UNK UKN, UNK
  2. AKATINOL [Concomitant]
     Dosage: UNK UKN, UNK
  3. HYDROCHLOROTHIAZIDE [Concomitant]
     Dosage: UNK UKN, UNK
  4. TRILEPTAL [Suspect]
     Indication: CONVULSION
     Dosage: UNK UKN, UNK
     Dates: start: 20090101

REACTIONS (4)
  - CEREBELLAR ATAXIA [None]
  - HYPOCALCAEMIA [None]
  - HYPONATRAEMIA [None]
  - HYPOTENSION [None]
